FAERS Safety Report 15677648 (Version 1)
Quarter: 2018Q4

REPORT INFORMATION
  Report Type: Spontaneous
  Country: ZA (occurrence: ZA)
  Receive Date: 20181130
  Receipt Date: 20181130
  Transmission Date: 20190205
  Serious: Yes (Life-Threatening, Hospitalization)
  Sender: FDA-Public Use
  Company Number: PHHY2018ZA168866

PATIENT
  Sex: Female
  Weight: 49.5 kg

DRUGS (1)
  1. ACLASTA [Suspect]
     Active Substance: ZOLEDRONIC ACID
     Indication: PRODUCT USED FOR UNKNOWN INDICATION
     Dosage: 5 MG, UNK
     Route: 041
     Dates: start: 20181123

REACTIONS (7)
  - Jaw disorder [Unknown]
  - Tooth loss [Unknown]
  - Apparent death [Unknown]
  - Sepsis [Unknown]
  - Blood pressure fluctuation [Unknown]
  - Abnormal sensation in eye [Unknown]
  - Heart rate abnormal [Unknown]
